FAERS Safety Report 5675984-4 (Version None)
Quarter: 2008Q1

REPORT INFORMATION
  Report Type: 
  Country: None (occurrence: None)
  Receive Date: 20080318
  Receipt Date: 20080307
  Transmission Date: 20080703
  Serious: Yes (Hospitalization)
  Sender: FDA-Public Use
  Company Number: OPER20080022

PATIENT
  Age: 66 Year
  Sex: Female
  Weight: 113.3993 kg

DRUGS (2)
  1. OPANA ER [Suspect]
     Indication: BONE PAIN
     Dosage: 10 MG, PER ORAL
     Route: 048
     Dates: start: 20071219, end: 20071222
  2. CELEBREX [Concomitant]

REACTIONS (1)
  - ATRIAL FIBRILLATION [None]
